FAERS Safety Report 24910420 (Version 2)
Quarter: 2025Q1

REPORT INFORMATION
  Report Type: Spontaneous
  Country: CZ (occurrence: CZ)
  Receive Date: 20250131
  Receipt Date: 20250211
  Transmission Date: 20250408
  Serious: Yes (Other)
  Sender: SANOFI AVENTIS
  Company Number: CZ-SA-2025SA029137

PATIENT
  Age: 26 Year
  Sex: Female
  Weight: 125 kg

DRUGS (1)
  1. DUPILUMAB [Suspect]
     Active Substance: DUPILUMAB
     Dates: start: 20231002

REACTIONS (2)
  - Intracranial pressure increased [Unknown]
  - Skin disorder [Unknown]
